FAERS Safety Report 20657443 (Version 1)
Quarter: 2022Q1

REPORT INFORMATION
  Report Type: Spontaneous
  Country: US (occurrence: US)
  Receive Date: 20220331
  Receipt Date: 20220331
  Transmission Date: 20220423
  Serious: No
  Sender: FDA-Public Use
  Company Number: US-LUPIN PHARMACEUTICALS INC.-2022-04369

PATIENT
  Sex: Male

DRUGS (6)
  1. QUETIAPINE [Suspect]
     Active Substance: QUETIAPINE
     Indication: Dementia
     Dosage: UNK
     Route: 065
  2. CIPROFLOXACIN [Suspect]
     Active Substance: CIPROFLOXACIN
     Indication: Urinary tract infection
     Dosage: UNK
     Route: 065
  3. METHOTREXATE [Concomitant]
     Active Substance: METHOTREXATE
     Indication: Product used for unknown indication
     Dosage: UNK
     Route: 065
  4. MORPHINE SULFATE [Concomitant]
     Active Substance: MORPHINE SULFATE
     Indication: Sedative therapy
     Dosage: UNK
     Route: 065
  5. LORAZ [Concomitant]
     Active Substance: LORAZEPAM
     Indication: Sedative therapy
     Dosage: UNK
     Route: 065
     Dates: start: 20220209
  6. MIDODRINE [Concomitant]
     Active Substance: MIDODRINE
     Indication: Blood pressure abnormal
     Dosage: UNK
     Route: 065
     Dates: start: 202110

REACTIONS (8)
  - Contraindicated product administered [Unknown]
  - Anxiety [Unknown]
  - Restlessness [Unknown]
  - Agitation [Unknown]
  - Panic attack [Unknown]
  - Initial insomnia [Unknown]
  - Irritability [Unknown]
  - Aggression [Unknown]
